FAERS Safety Report 5030133-0 (Version None)
Quarter: 2006Q2

REPORT INFORMATION
  Report Type: 
  Country: None (occurrence: None)
  Receive Date: 20060614
  Receipt Date: 20060530
  Transmission Date: 20061013
  Serious: Yes (Hospitalization, Other)
  Sender: FDA-Public Use
  Company Number: GB200511002170

PATIENT
  Age: 47 Year
  Sex: Female
  Weight: 65 kg

DRUGS (7)
  1. FLUOXETINE HCL [Suspect]
     Indication: MAJOR DEPRESSION
     Dosage: 40 MG, DAILY (1/D); 20 MG, 2/D
  2. QUETIAPINE FUMARATE [Concomitant]
  3. PREDNISOLONE [Concomitant]
  4. DRATE, CLAVULANATE POTASSIUM) [Concomitant]
  5. TAZOCIN (PIPERACILLIN SODIUM, TAZOBACTAM SODIUM) [Concomitant]
  6. MONTELUKAST (MONTELUKAST) [Concomitant]
  7. CLARITHROMYCIN [Concomitant]

REACTIONS (6)
  - BRONCHIECTASIS [None]
  - COMPUTERISED TOMOGRAM ABNORMAL [None]
  - DYSPNOEA [None]
  - LUNG NEOPLASM [None]
  - OBSTRUCTIVE AIRWAYS DISORDER [None]
  - PULMONARY EOSINOPHILIA [None]
